FAERS Safety Report 19889162 (Version 3)
Quarter: 2021Q4

REPORT INFORMATION
  Report Type: Spontaneous
  Country: BR (occurrence: BR)
  Receive Date: 20210927
  Receipt Date: 20211012
  Transmission Date: 20220304
  Serious: Yes (Other)
  Sender: FDA-Public Use
  Company Number: BR-ALLERGAN-2133030US

PATIENT
  Sex: Female
  Weight: 48 kg

DRUGS (8)
  1. FOSFOMYCIN TROMETHAMINE [Suspect]
     Active Substance: FOSFOMYCIN TROMETHAMINE
     Indication: Urinary tract infection
     Dosage: 1 SACHET EVERY 3 DAYS, TOTAL 2 SACHETS
     Route: 048
     Dates: start: 20210919, end: 20210919
  2. FOSFOMYCIN TROMETHAMINE [Suspect]
     Active Substance: FOSFOMYCIN TROMETHAMINE
     Dosage: 1 SACHET EVERY 3 DAYS, TOTAL 2 SACHETS
     Route: 048
     Dates: start: 20210916, end: 20210916
  3. DIOVAN [Concomitant]
     Active Substance: VALSARTAN
     Dosage: 160 MG
  4. ALDACTONE [Concomitant]
     Active Substance: SPIRONOLACTONE
     Dosage: UNK
  5. ROSUVASTATIN [Concomitant]
     Active Substance: ROSUVASTATIN
     Dosage: UNK
  6. AMLODIPINE BESYLATE [Concomitant]
     Active Substance: AMLODIPINE BESYLATE
     Dosage: UNK
  7. BRONCHO VAXOM [BACTERIA LYSATE NOS] [Concomitant]
     Dosage: UNK
  8. CREATINA [Concomitant]
     Dosage: UNK

REACTIONS (4)
  - Ear pain [Recovered/Resolved]
  - Deafness [Recovered/Resolved]
  - Back pain [Recovered/Resolved]
  - Off label use [Unknown]

NARRATIVE: CASE EVENT DATE: 20210917
